FAERS Safety Report 10152662 (Version 1)
Quarter: 2014Q2

REPORT INFORMATION
  Report Type: Spontaneous
  Country: US (occurrence: None)
  Receive Date: 20140502
  Receipt Date: 20140502
  Transmission Date: 20141212
  Serious: Yes (Other)
  Sender: FDA-Public Use
  Company Number: None

PATIENT
  Age: 30 Year
  Sex: Male
  Weight: 90.72 kg

DRUGS (1)
  1. SUBOXONE [Suspect]
     Indication: DRUG DEPENDENCE
     Dosage: 8/2 MG X2  QD SL
     Route: 060
     Dates: start: 20131218

REACTIONS (4)
  - Oedema [None]
  - Peripheral swelling [None]
  - Peripheral swelling [None]
  - Erythema [None]
